FAERS Safety Report 8728215 (Version 3)
Quarter: 2012Q4

REPORT INFORMATION
  Report Type: 
  Country: US (occurrence: US)
  Receive Date: 20120817
  Receipt Date: 20120906
  Transmission Date: 20130627
  Serious: No
  Sender: FDA-Public Use
  Company Number: US-PFIZER INC-2012200297

PATIENT
  Age: 65 Year
  Sex: Female
  Weight: 61.22 kg

DRUGS (2)
  1. CHANTIX [Suspect]
     Indication: SMOKING CESSATION THERAPY
     Dosage: 1 mg, 2x/day
     Route: 048
     Dates: start: 201207
  2. COMBIVENT [Concomitant]
     Dosage: UNK

REACTIONS (3)
  - Incorrect dose administered [Unknown]
  - Tobacco user [Unknown]
  - Drug ineffective [Unknown]
